FAERS Safety Report 10925419 (Version 2)
Quarter: 2015Q2

REPORT INFORMATION
  Report Type: Spontaneous
  Country: US (occurrence: US)
  Receive Date: 20150318
  Receipt Date: 20150515
  Transmission Date: 20150821
  Serious: Yes (Hospitalization, Other)
  Sender: FDA-Public Use
  Company Number: US-AMGEN-USASP2015022963

PATIENT
  Age: 79 Year
  Sex: Female

DRUGS (3)
  1. PROLIA [Suspect]
     Active Substance: DENOSUMAB
     Indication: OSTEOPOROSIS
     Dosage: UNK UNK, Q6MO
     Route: 065
     Dates: start: 20150219
  2. AGGRENOX [Concomitant]
     Active Substance: ASPIRIN\DIPYRIDAMOLE
     Indication: HYPERTENSION
     Dosage: 25 MG, QD
  3. LISINOPRIL. [Concomitant]
     Active Substance: LISINOPRIL
     Indication: BLOOD PRESSURE ABNORMAL
     Dosage: 20 MG, QD

REACTIONS (11)
  - Abasia [Not Recovered/Not Resolved]
  - Headache [Recovered/Resolved]
  - Impaired self-care [Unknown]
  - Adverse drug reaction [Unknown]
  - Dehydration [Unknown]
  - Osteopenia [Unknown]
  - Dizziness [Not Recovered/Not Resolved]
  - Nystagmus [Recovering/Resolving]
  - Blood sodium increased [Unknown]
  - Diplopia [Not Recovered/Not Resolved]
  - Hypertension [Recovered/Resolved]

NARRATIVE: CASE EVENT DATE: 2015
